FAERS Safety Report 12445065 (Version 1)
Quarter: 2016Q2

REPORT INFORMATION
  Report Type: Spontaneous
  Country: ES (occurrence: ES)
  Receive Date: 20160607
  Receipt Date: 20160607
  Transmission Date: 20160815
  Serious: Yes (Hospitalization, Other)
  Sender: FDA-Public Use
  Company Number: ES-BRISTOL-MYERS SQUIBB COMPANY-BMS-2016-044343

PATIENT
  Age: 49 Year
  Sex: Male

DRUGS (5)
  1. CITALOPRAM [Concomitant]
     Active Substance: CITALOPRAM HYDROBROMIDE
     Indication: MAJOR DEPRESSION
     Route: 065
  2. LYSODREN [Suspect]
     Active Substance: MITOTANE
     Indication: ADRENOCORTICAL CARCINOMA
     Dosage: 3 G, TID
     Route: 048
     Dates: start: 2015, end: 20160511
  3. RIVOTRIL [Concomitant]
     Active Substance: CLONAZEPAM
     Indication: PRODUCT USED FOR UNKNOWN INDICATION
     Dosage: 0.5 G, QD
     Route: 048
  4. HIDROALTESONA [Concomitant]
     Indication: ADRENOCORTICAL CARCINOMA
     Route: 048
  5. NEXIUM [Concomitant]
     Active Substance: ESOMEPRAZOLE MAGNESIUM
     Indication: PRODUCT USED FOR UNKNOWN INDICATION
     Dosage: UNK
     Route: 048

REACTIONS (9)
  - Nausea [Recovering/Resolving]
  - Vomiting [Recovering/Resolving]
  - Pancytopenia [Recovering/Resolving]
  - Abdominal pain [Recovering/Resolving]
  - Weight decreased [Unknown]
  - Adrenocortical insufficiency acute [Recovering/Resolving]
  - Skin hyperpigmentation [Recovering/Resolving]
  - Diarrhoea [Recovering/Resolving]
  - Hyperglycaemia [Recovering/Resolving]

NARRATIVE: CASE EVENT DATE: 201508
